FAERS Safety Report 9113355 (Version 1)
Quarter: 2013Q1

REPORT INFORMATION
  Report Type: Spontaneous
  Country: US (occurrence: US)
  Receive Date: 20130211
  Receipt Date: 20130211
  Transmission Date: 20140127
  Serious: No
  Sender: FDA-Public Use
  Company Number: US-009507513-1302USA003829

PATIENT
  Sex: Male

DRUGS (1)
  1. FOSAMAX [Suspect]
     Dosage: 70 MG, QW

REACTIONS (2)
  - Overdose [Unknown]
  - No adverse event [Unknown]
